FAERS Safety Report 7082507-4 (Version None)
Quarter: 2010Q4

REPORT INFORMATION
  Report Type: 
  Country: None (occurrence: None)
  Receive Date: 20101026
  Receipt Date: 20101013
  Transmission Date: 20110411
  Serious: Yes (Other)
  Sender: FDA-Public Use
  Company Number: 10-001474

PATIENT
  Age: 50 Year
  Sex: Female
  Weight: 44.4 kg

DRUGS (2)
  1. ESTRACE [Suspect]
     Indication: VULVOVAGINAL DRYNESS
     Dosage: 1 G, QD, VAGINAL
     Route: 067
     Dates: start: 20100701, end: 20101001
  2. VITAMIN D [Concomitant]

REACTIONS (6)
  - BACK PAIN [None]
  - GROIN PAIN [None]
  - RHEUMATOID ARTHRITIS [None]
  - SPINAL COLUMN STENOSIS [None]
  - SPINAL DISORDER [None]
  - URINARY INCONTINENCE [None]
